FAERS Safety Report 16072622 (Version 1)
Quarter: 2019Q1

REPORT INFORMATION
  Report Type: Spontaneous
  Country: IT (occurrence: IT)
  Receive Date: 20190314
  Receipt Date: 20190314
  Transmission Date: 20190418
  Serious: Yes (Hospitalization, Other)
  Sender: FDA-Public Use
  Company Number: IT-BRISTOL-MYERS SQUIBB COMPANY-BMS-2019-021987

PATIENT
  Age: 80 Year
  Sex: Male

DRUGS (1)
  1. COUMADIN [Suspect]
     Active Substance: WARFARIN SODIUM
     Indication: DEEP VEIN THROMBOSIS
     Dosage: 5 MILLIGRAM, TOTAL DAILY DOSAGE
     Route: 048
     Dates: start: 20090101, end: 20190215

REACTIONS (7)
  - Headache [Not Recovered/Not Resolved]
  - Ruptured cerebral aneurysm [Unknown]
  - Vomiting [Not Recovered/Not Resolved]
  - Aneurysm ruptured [Not Recovered/Not Resolved]
  - Arterial rupture [Not Recovered/Not Resolved]
  - Intracranial aneurysm [Not Recovered/Not Resolved]
  - Haematoma [Not Recovered/Not Resolved]

NARRATIVE: CASE EVENT DATE: 20190215
